FAERS Safety Report 15111449 (Version 1)
Quarter: 2018Q3

REPORT INFORMATION
  Report Type: Spontaneous
  Country: US (occurrence: US)
  Receive Date: 20180705
  Receipt Date: 20180705
  Transmission Date: 20181010
  Serious: No
  Sender: FDA-Public Use
  Company Number: US-009507513-1806USA012913

PATIENT
  Sex: Female

DRUGS (1)
  1. KEYTRUDA [Suspect]
     Active Substance: PEMBROLIZUMAB
     Route: 041

REACTIONS (2)
  - Hypersensitivity [Recovered/Resolved]
  - Back pain [Recovered/Resolved]
